FAERS Safety Report 4872180-5 (Version None)
Quarter: 2006Q1

REPORT INFORMATION
  Report Type: 
  Country: None (occurrence: None)
  Receive Date: 20060103
  Receipt Date: 20051221
  Transmission Date: 20060701
  Serious: Yes (Other)
  Sender: FDA-Public Use
  Company Number: WAES 0512USA03699

PATIENT
  Age: 68 Year
  Sex: Male

DRUGS (3)
  1. DECADRON [Suspect]
     Indication: MULTIPLE MYELOMA
     Dosage: 12 MG/DAILY PO
     Route: 048
  2. THALIDOMIDE [Suspect]
     Indication: MULTIPLE MYELOMA
     Dosage: 300 MG/DAILY  PO
     Route: 048
  3. INJ INCADRONATE DISODIUM [Suspect]
     Indication: MULTIPLE MYELOMA
     Dosage: 10 MG/DAILY  IV
     Route: 042

REACTIONS (2)
  - SLEEP APNOEA SYNDROME [None]
  - THERAPEUTIC RESPONSE DECREASED [None]
